FAERS Safety Report 6535425-1 (Version None)
Quarter: 2010Q1

REPORT INFORMATION
  Report Type: 
  Country: None (occurrence: None)
  Receive Date: 20100111
  Receipt Date: 20100111
  Transmission Date: 20100710
  Serious: Yes (Hospitalization, Disabling)
  Sender: FDA-Public Use
  Company Number: None

PATIENT
  Age: 82 Year
  Sex: Female
  Weight: 48.9885 kg

DRUGS (1)
  1. CALCITONIN SALMON [Suspect]
     Indication: OSTEOPOROSIS
     Dosage: 1 SNIFF DAILY
     Dates: start: 20091006, end: 20091028

REACTIONS (5)
  - EXOSTOSIS [None]
  - FALL [None]
  - PAIN IN EXTREMITY [None]
  - PAIN IN JAW [None]
  - WEIGHT DECREASED [None]
